FAERS Safety Report 16643123 (Version 2)
Quarter: 2019Q3

REPORT INFORMATION
  Report Type: Spontaneous
  Country: TW (occurrence: TW)
  Receive Date: 20190729
  Receipt Date: 20190927
  Transmission Date: 20191004
  Serious: Yes (Other)
  Sender: FDA-Public Use
  Company Number: TW-PFIZER INC-2019316261

PATIENT
  Age: 75 Year
  Sex: Female

DRUGS (5)
  1. CINNAZINE [Concomitant]
     Dosage: 1 DF, DAILY
  2. XELJANZ [Suspect]
     Active Substance: TOFACITINIB CITRATE
     Indication: RHEUMATOID ARTHRITIS
     Dosage: 5 MG, 2X/DAY
     Dates: start: 201804, end: 20190722
  3. PREDNISOLONE. [Concomitant]
     Active Substance: PREDNISOLONE
     Dosage: 1 DF, DAILY
  4. ARHEUMA [Concomitant]
     Dosage: 20 MG, DAILY
  5. ARCOXIA [Concomitant]
     Active Substance: ETORICOXIB
     Dosage: 1 DF, DAILY

REACTIONS (4)
  - C-reactive protein increased [Recovering/Resolving]
  - Red blood cell sedimentation rate increased [Recovering/Resolving]
  - Urinary tract infection [Unknown]
  - Pollakiuria [Unknown]

NARRATIVE: CASE EVENT DATE: 20190719
